FAERS Safety Report 23942144 (Version 1)
Quarter: 2024Q2

REPORT INFORMATION
  Report Type: Spontaneous
  Country: US (occurrence: None)
  Receive Date: 20240604
  Receipt Date: 20240604
  Transmission Date: 20240716
  Serious: No
  Sender: FDA-Public Use
  Company Number: None

PATIENT
  Age: 46 Year
  Sex: Female

DRUGS (12)
  1. INGREZZA [Suspect]
     Active Substance: VALBENAZINE
     Dosage: FREQUENCY : DAILY;?
     Route: 048
     Dates: start: 20240528, end: 20240604
  2. BUPROPION XL [Concomitant]
  3. CELECOXIB [Concomitant]
  4. CLONAZEPAM [Concomitant]
  5. CYCLOBENZAPRINE [Concomitant]
  6. ESTRADIOL [Concomitant]
  7. CLONAZEPAM [Concomitant]
  8. PREGABALIN [Concomitant]
  9. REXULTI [Concomitant]
  10. SOLIFENACIN [Concomitant]
  11. TIZANIDINE [Concomitant]
  12. TRAMADOL [Concomitant]

REACTIONS (1)
  - Somnolence [None]

NARRATIVE: CASE EVENT DATE: 20240604
